FAERS Safety Report 7055647-3 (Version None)
Quarter: 2010Q4

REPORT INFORMATION
  Report Type: 
  Country: None (occurrence: None)
  Receive Date: 20101021
  Receipt Date: 20101012
  Transmission Date: 20110411
  Serious: Yes (Life-Threatening, Other)
  Sender: FDA-Public Use
  Company Number: FR-BRISTOL-MYERS SQUIBB COMPANY-15341092

PATIENT
  Age: 62 Year
  Sex: Female

DRUGS (11)
  1. GLUCOPHAGE [Interacting]
     Indication: DIABETES MELLITUS
     Dosage: GLUCOPHAGE 850 MG
     Route: 048
  2. PROCORALAN [Interacting]
     Indication: CARDIAC FAILURE
     Route: 048
     Dates: start: 20100909, end: 20100913
  3. ALDALIX [Suspect]
     Indication: CARDIAC FAILURE
  4. FLUOXETINE [Concomitant]
     Dosage: FLUOXETINE 20 MG
     Route: 048
  5. RIVOTRIL [Concomitant]
     Dosage: 5 DF
  6. ZYRTEC [Concomitant]
     Route: 048
  7. VENTOLIN [Concomitant]
     Indication: ASTHMA
     Dosage: 2 DF=2 PUFFS
  8. SYMBICORT [Concomitant]
     Indication: ASTHMA
     Dosage: 200, 2 PUFFS/DAY
  9. NOCTAMIDE [Concomitant]
     Indication: INSOMNIA
     Dosage: 1DF=2MG TAB
  10. PARIET [Concomitant]
     Dosage: 1DF=20MG TAB
     Route: 048
  11. DILTIAZEM [Concomitant]
     Indication: HYPERTENSION
     Dosage: CAPSULE
     Route: 048

REACTIONS (4)
  - CARDIAC ARREST [None]
  - DRUG INTERACTION [None]
  - HYPOKALAEMIA [None]
  - TORSADE DE POINTES [None]
